FAERS Safety Report 14961525 (Version 2)
Quarter: 2018Q2

REPORT INFORMATION
  Report Type: Report from Study
  Country: US (occurrence: US)
  Receive Date: 20180601
  Receipt Date: 20180622
  Transmission Date: 20180711
  Serious: Yes (Other)
  Sender: FDA-Public Use
  Company Number: PHEH2018US021043

PATIENT
  Age: 66 Year
  Sex: Female

DRUGS (1)
  1. GILENYA [Suspect]
     Active Substance: FINGOLIMOD HYDROCHLORIDE
     Indication: MULTIPLE SCLEROSIS
     Dosage: 0.5 MG, QD
     Route: 048
     Dates: start: 20180413, end: 20180519

REACTIONS (7)
  - Transient ischaemic attack [Unknown]
  - Foot fracture [Unknown]
  - Fall [Unknown]
  - Confusional state [Recovered/Resolved]
  - Dizziness [Unknown]
  - Cerebrovascular accident [Recovered/Resolved]
  - Speech disorder [Unknown]

NARRATIVE: CASE EVENT DATE: 20180519
